FAERS Safety Report 23944002 (Version 2)
Quarter: 2024Q2

REPORT INFORMATION
  Report Type: Spontaneous
  Country: ES (occurrence: ES)
  Receive Date: 20240606
  Receipt Date: 20240614
  Transmission Date: 20240716
  Serious: Yes (Hospitalization)
  Sender: FDA-Public Use
  Company Number: ES-ROCHE-3416632

PATIENT
  Age: 50 Year
  Sex: Male
  Weight: 94 kg

DRUGS (46)
  1. CARBOPLATIN [Suspect]
     Active Substance: CARBOPLATIN
     Indication: Non-small cell lung cancer metastatic
     Dosage: ON 17/JUL/2023 MOST RECENT DOSE OF STUDY DRUG WAS GIVEN PRIOR TO AE
     Route: 042
     Dates: start: 20230510
  2. PEMETREXED [Suspect]
     Active Substance: PEMETREXED
     Indication: Non-small cell lung cancer metastatic
     Dosage: ON 28/AUG/2023 RECEIVED MOST RECENT DOSE OF PEMETREXED PRIOR TO SAE 975 MG.
     Route: 042
     Dates: start: 20230510
  3. PEMETREXED [Suspect]
     Active Substance: PEMETREXED
     Dosage: ON 28/AUG/2023 RECEIVED MOST RECENT DOSE OF PEMETREXED PRIOR TO SAE 975 MG.
     Route: 042
  4. FOLIC ACID [Concomitant]
     Active Substance: FOLIC ACID
     Indication: Product used for unknown indication
     Dosage: 5 MG, QD
     Route: 065
  5. AMOXICILLIN\CLAVULANIC ACID [Concomitant]
     Active Substance: AMOXICILLIN\CLAVULANIC ACID
     Indication: Cellulitis
     Dosage: 500 MG
     Route: 065
     Dates: start: 20230903, end: 20230905
  6. AMOXICILLIN\CLAVULANIC ACID [Concomitant]
     Active Substance: AMOXICILLIN\CLAVULANIC ACID
     Indication: Respiratory failure
     Dosage: 500 MG
     Route: 065
     Dates: start: 20230903, end: 20230905
  7. AMOXICILLIN\CLAVULANIC ACID [Concomitant]
     Active Substance: AMOXICILLIN\CLAVULANIC ACID
     Dosage: 1 TABLET
     Route: 065
     Dates: start: 20230804, end: 20230814
  8. ATEZOLIZUMAB [Concomitant]
     Active Substance: ATEZOLIZUMAB
     Indication: Non-small cell lung cancer metastatic
     Dosage: ON 28/AUG/2023, MOST RECENT DOSE OF BLINDED ATEZOLIZUMAB PRIOR TO SAE.
     Route: 065
     Dates: start: 20230510
  9. ATROALDO [Concomitant]
     Indication: Asthma
     Dosage: 40.000UG
     Route: 065
  10. BECLOMETHASONE\FORMOTEROL [Concomitant]
     Active Substance: BECLOMETHASONE\FORMOTEROL
     Indication: Respiratory failure
     Dosage: 2 PUFF
     Route: 065
     Dates: start: 20230904, end: 20230905
  11. DEXAMETHASONE [Concomitant]
     Active Substance: DEXAMETHASONE
     Dosage: 20 MG, QD
     Route: 065
     Dates: start: 20230828, end: 20230828
  12. DEXAMETHASONE [Concomitant]
     Active Substance: DEXAMETHASONE
     Dosage: 4 MG, QD
     Route: 065
     Dates: start: 20230829, end: 20230829
  13. DEXAMETHASONE [Concomitant]
     Active Substance: DEXAMETHASONE
     Indication: Product used for unknown indication
     Dosage: 4 MG
     Route: 065
     Dates: start: 20230827, end: 20230827
  14. DIPYRONE [Concomitant]
     Active Substance: DIPYRONE
     Indication: Product used for unknown indication
     Dosage: 2 G
     Route: 065
     Dates: start: 20230509
  15. DIPYRONE [Concomitant]
     Active Substance: DIPYRONE
     Indication: Back pain
     Dosage: UNK
     Route: 065
  16. ENOXAPARIN [Concomitant]
     Active Substance: ENOXAPARIN
     Indication: Respiratory failure
     Dosage: 40.000MG QD
     Route: 065
     Dates: start: 20230904, end: 20230904
  17. FENTANYL [Concomitant]
     Active Substance: FENTANYL\FENTANYL CITRATE
     Indication: Respiratory failure
     Dosage: 200 UG, QD
     Route: 065
     Dates: start: 20230905, end: 20230905
  18. FENTANYL [Concomitant]
     Active Substance: FENTANYL\FENTANYL CITRATE
     Indication: Back pain
  19. FENTANYL TRANSDERMAL SYSTEM [Concomitant]
     Active Substance: FENTANYL
     Indication: Back pain
     Dosage: 25 UG
     Route: 065
     Dates: start: 20230509
  20. FENTANYL TRANSDERMAL SYSTEM [Concomitant]
     Active Substance: FENTANYL
     Indication: Respiratory failure
  21. HYDROCORTISONE [Concomitant]
     Active Substance: HYDROCORTISONE\HYDROCORTISONE ACETATE
     Indication: Respiratory failure
     Dosage: 150.000MG QD
     Route: 065
     Dates: start: 20230903, end: 20230903
  22. ALBUTEROL\IPRATROPIUM [Concomitant]
     Active Substance: ALBUTEROL\IPRATROPIUM
     Indication: Respiratory failure
     Dosage: SALBUTAMOL 5 MG+ IPATROPIUM (500UG)
     Route: 065
     Dates: start: 20230903, end: 20230905
  23. Kaptic [Concomitant]
     Indication: Back pain
     Dosage: 200 UG
     Route: 065
     Dates: start: 20230509
  24. LYRICA [Concomitant]
     Active Substance: PREGABALIN
     Indication: Back pain
     Dosage: 150 MG
     Route: 065
  25. METAMIZOLE [Concomitant]
     Active Substance: METAMIZOLE
     Indication: Back pain
     Dosage: 2 G
     Route: 065
     Dates: start: 20230509
  26. METHYLPREDNISOLONE [Concomitant]
     Active Substance: METHYLPREDNISOLONE
     Indication: Respiratory failure
     Dosage: 20.000MG QD
     Route: 065
     Dates: start: 20230903, end: 20230904
  27. MONTELUKAST [Concomitant]
     Active Substance: MONTELUKAST SODIUM
     Indication: Chronic obstructive pulmonary disease
     Dosage: 10.000MG QD
     Route: 065
  28. NICOTINE [Concomitant]
     Active Substance: NICOTINE
     Indication: Ex-tobacco user
     Dosage: UNK
     Route: 065
     Dates: start: 20230905
  29. OMEPRAZOLE [Concomitant]
     Active Substance: DONEPEZIL HYDROCHLORIDE\OMEPRAZOLE\OMEPRAZOLE MAGNESIUM
     Indication: Product used for unknown indication
     Dosage: 20 MG, QD
     Route: 065
  30. ACETAMINOPHEN [Concomitant]
     Active Substance: ACETAMINOPHEN
     Indication: Respiratory failure
     Dosage: 1 G, QD
     Route: 065
     Dates: start: 20230903, end: 20230904
  31. PEITEL [Concomitant]
     Indication: Rash
     Dosage: UNK
     Route: 065
     Dates: start: 20230517
  32. PEMBROLIZUMAB [Concomitant]
     Active Substance: PEMBROLIZUMAB
     Indication: Non-small cell lung cancer metastatic
     Dosage: ON 28/AUG/2023, MOST RECENT DOSE OF BLINDED PEMBROLIZUMAB PRIOR TO SAE.
     Route: 065
     Dates: start: 20230510
  33. PREDNISONE ACETATE [Concomitant]
     Active Substance: PREDNISONE ACETATE
     Dosage: 30.000MG QD
     Route: 065
     Dates: start: 20230904, end: 20230905
  34. PREDNISONE ACETATE [Concomitant]
     Active Substance: PREDNISONE ACETATE
     Indication: Respiratory failure
     Dosage: UNK
     Route: 065
     Dates: start: 20230908, end: 20230910
  35. PREDNISONE ACETATE [Concomitant]
     Active Substance: PREDNISONE ACETATE
     Dosage: UNK
     Route: 065
     Dates: start: 20230906, end: 20230907
  36. PREDNISONE ACETATE [Concomitant]
     Active Substance: PREDNISONE ACETATE
     Dosage: UNK
     Route: 065
     Dates: start: 20230911, end: 20230913
  37. PREGABALIN [Concomitant]
     Active Substance: PREGABALIN
     Indication: Back pain
     Dosage: 150 MG
     Route: 065
  38. PREGABALIN [Concomitant]
     Active Substance: PREGABALIN
     Indication: Respiratory failure
     Dosage: 75.000MG QD
     Route: 065
     Dates: start: 20230904, end: 20230905
  39. Terracortril [Concomitant]
     Indication: Conjunctivitis
     Dosage: UNK
     Route: 065
     Dates: start: 20230804, end: 20230811
  40. TIRAGOLUMAB [Concomitant]
     Active Substance: TIRAGOLUMAB
     Indication: Non-small cell lung cancer metastatic
     Dosage: ON 28/AUG/2023, MOST RECENT DOSE OF BLINDED TIRAGOLUMAB PRIOR TO AE/SAE.
     Route: 065
     Dates: start: 20230510
  41. BECLOMETHASONE DIPROPIONATE\FORMOTEROL FUMARATE\GLYCOPYRROLATE [Concomitant]
     Active Substance: BECLOMETHASONE DIPROPIONATE\FORMOTEROL FUMARATE\GLYCOPYRROLATE
     Indication: Chronic obstructive pulmonary disease
     Dosage: 1 PUFF
     Route: 065
  42. VENTOLIN [Concomitant]
     Active Substance: ALBUTEROL SULFATE
     Indication: Asthma
     Dosage: 100 UG, QD
     Route: 065
  43. CYANOCOBALAMIN [Concomitant]
     Active Substance: CYANOCOBALAMIN
     Indication: Product used for unknown indication
     Dosage: 1000 UG, QOD
     Route: 065
     Dates: start: 20230421
  44. VOLTAREN [Concomitant]
     Active Substance: DICLOFENAC SODIUM
     Indication: Conjunctivitis
     Dosage: MEDICATION DOSE 1 OTHER
     Route: 065
     Dates: start: 20230804, end: 20230824
  45. VOLTAREN [Concomitant]
     Active Substance: DICLOFENAC SODIUM
     Indication: Gastrointestinal disorder prophylaxis
     Dosage: MEDICATION FREQUENCY UNKNOWN
     Route: 065
     Dates: start: 20230714
  46. ZOLPIDEM [Concomitant]
     Active Substance: ZOLPIDEM TARTRATE
     Indication: Insomnia
     Dosage: 10 MG, QD
     Route: 065
     Dates: start: 20230714

REACTIONS (1)
  - Chronic obstructive pulmonary disease [Recovered/Resolved]

NARRATIVE: CASE EVENT DATE: 20230903
